FAERS Safety Report 5737228-4 (Version None)
Quarter: 2008Q2

REPORT INFORMATION
  Report Type: 
  Country: None (occurrence: None)
  Receive Date: 20080514
  Receipt Date: 20080508
  Transmission Date: 20081010
  Serious: Yes (Other)
  Sender: FDA-Public Use
  Company Number: PHHY2008AT07428

PATIENT
  Sex: Female

DRUGS (4)
  1. RASILEZ [Suspect]
     Dosage: 300 MG/DAY
  2. ALDACTONE [Concomitant]
  3. NORVASC [Concomitant]
  4. FLUDEX [Concomitant]

REACTIONS (1)
  - ANGLE CLOSURE GLAUCOMA [None]
